FAERS Safety Report 5409871-3 (Version None)
Quarter: 2007Q3

REPORT INFORMATION
  Report Type: 
  Country: None (occurrence: None)
  Receive Date: 20070809
  Receipt Date: 20070731
  Transmission Date: 20080115
  Serious: Yes (Other)
  Sender: FDA-Public Use
  Company Number: DE-PFIZER INC-2007064222

PATIENT
  Sex: Female

DRUGS (2)
  1. ATARAX [Suspect]
     Dosage: TEXT:8-9 TABLETS
     Route: 048
     Dates: start: 20070731, end: 20070731
  2. AMISULPRIDE [Suspect]
     Dosage: TEXT:20-22 TABLETS
     Route: 048
     Dates: start: 20070731, end: 20070731

REACTIONS (2)
  - OVERDOSE [None]
  - SUICIDE ATTEMPT [None]
